FAERS Safety Report 13943613 (Version 1)
Quarter: 2017Q3

REPORT INFORMATION
  Report Type: Spontaneous
  Country: GB (occurrence: GB)
  Receive Date: 20170907
  Receipt Date: 20170907
  Transmission Date: 20171128
  Serious: Yes (Hospitalization)
  Sender: FDA-Public Use
  Company Number: GB-TEVA-802266ACC

PATIENT
  Age: 69 Year
  Sex: Male

DRUGS (4)
  1. BENDROFLUMETHIAZIDE [Suspect]
     Active Substance: BENDROFLUMETHIAZIDE
  2. LOSARTAN. [Suspect]
     Active Substance: LOSARTAN
  3. AMLODIPINE [Suspect]
     Active Substance: AMLODIPINE BESYLATE
  4. ATORVASTATIN [Suspect]
     Active Substance: ATORVASTATIN

REACTIONS (3)
  - Drug dispensed to wrong patient [Unknown]
  - Confusional state [Recovered/Resolved]
  - Hypotension [Unknown]

NARRATIVE: CASE EVENT DATE: 20170310
